FAERS Safety Report 7459395-7 (Version None)
Quarter: 2011Q2

REPORT INFORMATION
  Report Type: 
  Country: None (occurrence: None)
  Receive Date: 20110505
  Receipt Date: 20110420
  Transmission Date: 20111010
  Serious: Yes (Other)
  Sender: FDA-Public Use
  Company Number: US-JNJFOC-20110410636

PATIENT
  Sex: Male
  Weight: 92.99 kg

DRUGS (13)
  1. VENTOLIN [Concomitant]
     Indication: ASTHMA
     Dosage: 2 PUFFS AS NEEDED
     Route: 055
  2. SENOKOT [Concomitant]
     Dosage: BEDTIME
     Route: 048
  3. DURAGESIC [Suspect]
     Route: 062
  4. FENTANYL CITRATE [Suspect]
     Indication: PRODUCT USED FOR UNKNOWN INDICATION
     Route: 062
  5. ZOLOFT [Concomitant]
     Route: 048
  6. DURAGESIC [Suspect]
     Route: 062
  7. LUNESTA [Concomitant]
     Indication: SLEEP DISORDER
     Route: 048
  8. DURAGESIC [Suspect]
     Indication: PAIN
     Dosage: FOUR AND A HALF YEARS AGO
     Route: 062
  9. RAZADYNE ER [Concomitant]
     Indication: ROAD TRAFFIC ACCIDENT
  10. ADDERALL 10 [Concomitant]
     Indication: TRAUMATIC BRAIN INJURY
     Route: 048
  11. VICODIN [Concomitant]
     Indication: BREAKTHROUGH PAIN
     Route: 048
  12. CYMBALTA [Concomitant]
     Indication: PAIN IN EXTREMITY
     Route: 048
  13. CELEBREX [Concomitant]
     Indication: ARTHRALGIA
     Route: 048

REACTIONS (7)
  - CEREBRAL ATROPHY [None]
  - ROAD TRAFFIC ACCIDENT [None]
  - ACTIVITIES OF DAILY LIVING IMPAIRED [None]
  - PRODUCT QUALITY ISSUE [None]
  - PAIN [None]
  - TRAUMATIC BRAIN INJURY [None]
  - FEELING ABNORMAL [None]
